FAERS Safety Report 10977707 (Version 1)
Quarter: 2015Q2

REPORT INFORMATION
  Report Type: Spontaneous
  Country: US (occurrence: None)
  Receive Date: 20150401
  Receipt Date: 20150401
  Transmission Date: 20150821
  Serious: Yes (Other)
  Sender: FDA-Public Use
  Company Number: None

PATIENT
  Age: 64 Year
  Sex: Female
  Weight: 76.2 kg

DRUGS (9)
  1. ZOMETA [Suspect]
     Active Substance: ZOLEDRONIC ACID
     Indication: PROPHYLAXIS
     Dosage: EVERY 6 MONTHS
     Route: 042
  2. AROMASIN [Concomitant]
     Active Substance: EXEMESTANE
  3. VITAMIN D [Concomitant]
     Active Substance: CHOLECALCIFEROL
  4. METOPROLOL [Concomitant]
     Active Substance: METOPROLOL
  5. ZOMETA [Suspect]
     Active Substance: ZOLEDRONIC ACID
     Indication: METASTASES TO BONE
     Dosage: EVERY 6 MONTHS
     Route: 042
  6. LISINOPRIL. [Concomitant]
     Active Substance: LISINOPRIL
  7. ASA [Concomitant]
     Active Substance: ASPIRIN
  8. ALLEGRA [Concomitant]
     Active Substance: FEXOFENADINE HYDROCHLORIDE
  9. LIPITOR [Concomitant]
     Active Substance: ATORVASTATIN CALCIUM

REACTIONS (14)
  - Myalgia [None]
  - Arthralgia [None]
  - Pain in extremity [None]
  - Impaired work ability [None]
  - Atrial fibrillation [None]
  - Perineal pain [None]
  - Musculoskeletal pain [None]
  - Bone pain [None]
  - Gait disturbance [None]
  - Back pain [None]
  - Pelvic pain [None]
  - Discomfort [None]
  - Musculoskeletal chest pain [None]
  - White blood cells urine positive [None]

NARRATIVE: CASE EVENT DATE: 20150227
